FAERS Safety Report 17011182 (Version 1)
Quarter: 2019Q4

REPORT INFORMATION
  Report Type: Spontaneous
  Country: US (occurrence: US)
  Receive Date: 20191108
  Receipt Date: 20191108
  Transmission Date: 20200122
  Serious: No
  Sender: FDA-Public Use
  Company Number: US-NOVOPROD-657917

PATIENT
  Age: 65 Year
  Sex: Male

DRUGS (1)
  1. TRESIBA [Suspect]
     Active Substance: INSULIN DEGLUDEC
     Indication: GLUCOSE TOLERANCE IMPAIRED
     Dosage: 15 IU, QD
     Route: 058
     Dates: start: 20190408

REACTIONS (2)
  - Blood glucose increased [Recovered/Resolved]
  - Blood potassium increased [Unknown]

NARRATIVE: CASE EVENT DATE: 20190408
